FAERS Safety Report 4556077-6 (Version None)
Quarter: 2005Q1

REPORT INFORMATION
  Report Type: 
  Country: None (occurrence: None)
  Receive Date: 20050119
  Receipt Date: 20030204
  Transmission Date: 20050727
  Serious: Yes (Hospitalization, Other)
  Sender: FDA-Public Use
  Company Number: A0396235A

PATIENT
  Age: 41 Year
  Sex: Female

DRUGS (3)
  1. BC HEADACHE POWDER [Suspect]
     Route: 048
  2. ESTRACE [Concomitant]
     Route: 048
  3. BC SINUS COLD (UNSPEC.)-PHENYLPROPANOLAMINE [Concomitant]
     Route: 048

REACTIONS (46)
  - ABDOMINAL PAIN [None]
  - AMNESIA [None]
  - ANXIETY [None]
  - ARTHRALGIA [None]
  - ASTHENIA [None]
  - BALANCE DISORDER [None]
  - BURNING SENSATION [None]
  - CEREBROVASCULAR ACCIDENT [None]
  - CEREBROVASCULAR SPASM [None]
  - CRYING [None]
  - DECREASED APPETITE [None]
  - DYSKINESIA [None]
  - DYSPHAGIA [None]
  - EYE MOVEMENT DISORDER [None]
  - FACIAL PARESIS [None]
  - GASTROENTERITIS [None]
  - HEADACHE [None]
  - HYPOACUSIS [None]
  - HYPOAESTHESIA ORAL [None]
  - INFARCTION [None]
  - INSOMNIA [None]
  - INTRACRANIAL ANEURYSM [None]
  - LETHARGY [None]
  - MAJOR DEPRESSION [None]
  - MASTICATION DISORDER [None]
  - MENINGISM [None]
  - MENTAL STATUS CHANGES [None]
  - MIGRAINE [None]
  - MOOD ALTERED [None]
  - MYALGIA [None]
  - NAUSEA [None]
  - NERVOUSNESS [None]
  - NUCHAL RIGIDITY [None]
  - NYSTAGMUS [None]
  - OEDEMA [None]
  - PAIN IN EXTREMITY [None]
  - PARAESTHESIA [None]
  - PERSONALITY CHANGE [None]
  - PHOTOPHOBIA [None]
  - SENSORY DISTURBANCE [None]
  - SOMNOLENCE [None]
  - SUBARACHNOID HAEMORRHAGE [None]
  - SUICIDAL IDEATION [None]
  - THERAPEUTIC AGENT TOXICITY [None]
  - TRISMUS [None]
  - VISION BLURRED [None]
